FAERS Safety Report 4821057-X (Version None)
Quarter: 2005Q4

REPORT INFORMATION
  Report Type: 
  Country: None (occurrence: None)
  Receive Date: 20051104
  Receipt Date: 20051026
  Transmission Date: 20060501
  Serious: Yes (Hospitalization, Other)
  Sender: FDA-Public Use
  Company Number: US-ABBOTT-05P-163-0315516-00

PATIENT
  Sex: Female
  Weight: 50.848 kg

DRUGS (8)
  1. HUMIRA [Suspect]
     Indication: RHEUMATOID ARTHRITIS
     Route: 058
     Dates: start: 20050927, end: 20051012
  2. PIROXICAM [Concomitant]
     Indication: RHEUMATOID ARTHRITIS
     Dates: start: 20040501
  3. SULFASALAZINE [Concomitant]
     Indication: RHEUMATOID ARTHRITIS
     Dates: start: 20040304
  4. ASPIRIN [Concomitant]
     Indication: THROMBOSIS PROPHYLAXIS
     Dates: start: 20050401
  5. RALOXIFENE HYDROCHLORIDE [Concomitant]
     Indication: OSTEOPOROSIS
     Dates: start: 19950101
  6. HYDROCHLOROTHIAZIDE [Concomitant]
     Indication: OEDEMA PERIPHERAL
     Dates: start: 20010101
  7. TYLENOL (CAPLET) [Concomitant]
     Indication: INSOMNIA
     Dates: start: 19900101
  8. ULTRACET [Concomitant]
     Indication: RHEUMATOID ARTHRITIS
     Dates: start: 20050301

REACTIONS (2)
  - ABDOMINAL PAIN [None]
  - INTESTINAL OBSTRUCTION [None]
